FAERS Safety Report 25490243 (Version 1)
Quarter: 2025Q2

REPORT INFORMATION
  Report Type: Spontaneous
  Country: IN (occurrence: IN)
  Receive Date: 20250628
  Receipt Date: 20250628
  Transmission Date: 20250717
  Serious: Yes (Death, Life-Threatening, Congenital Anomaly)
  Sender: ACCORD
  Company Number: IN-MLMSERVICE-20250609-PI537292-00128-1

PATIENT

DRUGS (3)
  1. DOCETAXEL [Suspect]
     Active Substance: DOCETAXEL
     Dosage: FOUR CYCLES OF DOCETAXEL (75 MG/M2, EVERY 3 WEEKS)
     Route: 064
  2. CYCLOPHOSPHAMIDE [Suspect]
     Active Substance: CYCLOPHOSPHAMIDE
     Dosage: FOUR CYCLES OF CYCLOPHOSPHAMIDE (600 MG/M2, EVERY 3 WEEKS)
     Route: 064
  3. DOXORUBICIN [Suspect]
     Active Substance: DOXORUBICIN
     Route: 064

REACTIONS (5)
  - Congenital central nervous system anomaly [Fatal]
  - Limb hypoplasia congenital [Fatal]
  - Limb hypoplasia congenital [Fatal]
  - Septum pellucidum agenesis [Fatal]
  - Cerebral ventricle dilatation [Fatal]
